FAERS Safety Report 14742853 (Version 1)
Quarter: 2018Q2

REPORT INFORMATION
  Report Type: Spontaneous
  Country: FR (occurrence: FR)
  Receive Date: 20180410
  Receipt Date: 20180410
  Transmission Date: 20180711
  Serious: Yes (Other)
  Sender: FDA-Public Use
  Company Number: FR-MYLANLABS-2018M1022530

PATIENT
  Age: 30 Year
  Sex: Male

DRUGS (3)
  1. METHYLPHENIDATE. [Suspect]
     Active Substance: METHYLPHENIDATE
     Indication: NARCOLEPSY
     Dosage: 120 MG, QD
     Route: 065
  2. MODAFINIL. [Suspect]
     Active Substance: MODAFINIL
     Indication: NARCOLEPSY
     Dosage: 600 MG, QD
     Route: 065
  3. PITOLISANT [Concomitant]
     Active Substance: PITOLISANT
     Indication: NARCOLEPSY
     Dosage: 40 MG, QD
     Route: 065

REACTIONS (2)
  - Intentional product misuse [Unknown]
  - Psychotic symptom [Unknown]
